FAERS Safety Report 6024550-X (Version None)
Quarter: 2008Q4

REPORT INFORMATION
  Report Type: 
  Country: None (occurrence: None)
  Receive Date: 20081231
  Receipt Date: 20081120
  Transmission Date: 20090506
  Serious: Yes (Other)
  Sender: FDA-Public Use
  Company Number: US-BRISTOL-MYERS SQUIBB COMPANY-14372999

PATIENT
  Age: 61 Year
  Sex: Male

DRUGS (12)
  1. ORENCIA [Suspect]
     Indication: JUVENILE ARTHRITIS
     Dosage: LAST INFUSION ON 09-SEP-08. 1000 MG WEEKS 0,2,4THEN EVERY4 WEEKS
     Route: 042
     Dates: start: 20080610
  2. ORENCIA [Suspect]
     Indication: RHEUMATOID ARTHRITIS
     Dosage: LAST INFUSION ON 09-SEP-08. 1000 MG WEEKS 0,2,4THEN EVERY4 WEEKS
     Route: 042
     Dates: start: 20080610
  3. LISINOPRIL [Concomitant]
  4. ALENDRONATE SODIUM + COLECALCIFEROL [Concomitant]
     Dates: start: 20080101
  5. ASPIRIN [Concomitant]
     Dosage: ENTERIC COATED
     Dates: start: 20080901
  6. ATORVASTATIN CALCIUM [Concomitant]
     Dosage: TAKEN AT BED TIME.
     Dates: start: 20070801
  7. FLUOXETINE [Concomitant]
     Dates: start: 20080601
  8. METHOTREXATE [Concomitant]
  9. PREDNISONE [Concomitant]
     Dates: start: 20070801
  10. VICODIN [Concomitant]
     Dates: start: 20070601
  11. METHOCARBAMOL [Concomitant]
     Dates: start: 20080301
  12. DOXYCYCLINE [Concomitant]

REACTIONS (1)
  - SQUAMOUS CELL CARCINOMA [None]
